FAERS Safety Report 8595491-9 (Version None)
Quarter: 2012Q3

REPORT INFORMATION
  Report Type: 
  Country: None (occurrence: None)
  Receive Date: 20120815
  Receipt Date: 20120703
  Transmission Date: 20120928
  Serious: Yes (Hospitalization, Disabling, Other)
  Sender: FDA-Public Use
  Company Number: US-009507513-1203USA03332

PATIENT

DRUGS (5)
  1. FOSAMAX [Suspect]
     Indication: OSTEOPENIA
  2. FOSAMAX [Suspect]
     Route: 048
     Dates: start: 20020101, end: 20080201
  3. FOSAMAX [Suspect]
  4. FOSAMAX [Suspect]
     Indication: OSTEOPOROSIS
     Dosage: 70 MG, QW
     Route: 048
     Dates: start: 20000101, end: 20080302
  5. FOSAMAX [Suspect]
     Dosage: 10 MG, QD
     Route: 048

REACTIONS (71)
  - OSTEOMYELITIS [None]
  - LUNG NEOPLASM [None]
  - BURSITIS [None]
  - HYPERLIPIDAEMIA [None]
  - RHINITIS ALLERGIC [None]
  - CAROTID BRUIT [None]
  - IRON DEFICIENCY ANAEMIA [None]
  - CARDIAC FAILURE CONGESTIVE [None]
  - ACTINIC KERATOSIS [None]
  - HYPERCHOLESTEROLAEMIA [None]
  - CHEST PAIN [None]
  - PHARYNGITIS [None]
  - VOMITING [None]
  - AORTIC BRUIT [None]
  - BENIGN LUNG NEOPLASM [None]
  - LOBAR PNEUMONIA [None]
  - EMPHYSEMA [None]
  - RETINAL ARTERY OCCLUSION [None]
  - HYPOTENSION [None]
  - COLON ADENOMA [None]
  - DEAFNESS [None]
  - OSTEOARTHRITIS [None]
  - ABDOMINAL PAIN LOWER [None]
  - HYPERGLYCAEMIA [None]
  - ADVERSE EVENT [None]
  - PSEUDARTHROSIS [None]
  - HYPERTENSION [None]
  - INFECTION [None]
  - DIASTOLIC DYSFUNCTION [None]
  - MACULAR DEGENERATION [None]
  - URINARY TRACT INFECTION [None]
  - WRONG DEVICE DISPENSED [None]
  - PULMONARY EMBOLISM [None]
  - BLINDNESS UNILATERAL [None]
  - BRONCHOSPASM [None]
  - PULMONARY HYPERTENSION [None]
  - HYPOKALAEMIA [None]
  - DIVERTICULITIS [None]
  - BACK PAIN [None]
  - BONE DISORDER [None]
  - CATARACT [None]
  - ARTERIOSCLEROTIC RETINOPATHY [None]
  - CHRONIC OBSTRUCTIVE PULMONARY DISEASE [None]
  - ASTHMA [None]
  - DIARRHOEA [None]
  - TOOTH FRACTURE [None]
  - ROTATOR CUFF SYNDROME [None]
  - HYPERTROPHIC CARDIOMYOPATHY [None]
  - CARDIAC DISORDER [None]
  - PAIN IN EXTREMITY [None]
  - MULTIPLE FRACTURES [None]
  - BONE DENSITY DECREASED [None]
  - STRESS FRACTURE [None]
  - BODY TEMPERATURE INCREASED [None]
  - ARTHROPATHY [None]
  - GASTROOESOPHAGEAL REFLUX DISEASE [None]
  - PLEURAL EFFUSION [None]
  - HAEMORRHOIDS [None]
  - VIRAL INFECTION [None]
  - FEMUR FRACTURE [None]
  - OSTEOPOROSIS [None]
  - HYPOTHYROIDISM [None]
  - BLOOD GLUCOSE ABNORMAL [None]
  - FULL BLOOD COUNT ABNORMAL [None]
  - POST PROCEDURAL HAEMORRHAGE [None]
  - ATRIAL FIBRILLATION [None]
  - OSTEONECROSIS [None]
  - CORONARY ARTERY DISEASE [None]
  - DEHYDRATION [None]
  - DIVERTICULUM INTESTINAL [None]
  - ACUTE SINUSITIS [None]
